FAERS Safety Report 26165795 (Version 1)
Quarter: 2025Q4

REPORT INFORMATION
  Report Type: Report from Study
  Country: EU (occurrence: EU)
  Receive Date: 20251216
  Receipt Date: 20251216
  Transmission Date: 20260118
  Serious: Yes (Life-Threatening, Other)
  Sender: MYLAN
  Company Number: EU-SA-SAC20220525001404

PATIENT
  Age: 84 Year
  Sex: Female

DRUGS (12)
  1. DEXAMETHASONE [Suspect]
     Active Substance: DEXAMETHASONE
     Indication: Plasma cell myeloma refractory
     Dosage: 20 MILLIGRAM
     Dates: start: 20211231, end: 20220120
  2. DEXAMETHASONE [Suspect]
     Active Substance: DEXAMETHASONE
     Dosage: 20 MILLIGRAM
     Route: 065
     Dates: start: 20211231, end: 20220120
  3. DEXAMETHASONE [Suspect]
     Active Substance: DEXAMETHASONE
     Dosage: 20 MILLIGRAM
     Route: 065
     Dates: start: 20211231, end: 20220120
  4. DEXAMETHASONE [Suspect]
     Active Substance: DEXAMETHASONE
     Dosage: 20 MILLIGRAM
     Dates: start: 20211231, end: 20220120
  5. ISATUXIMAB [Suspect]
     Active Substance: ISATUXIMAB
     Indication: Plasma cell myeloma refractory
     Dosage: 740 MILLIGRAM, QW
     Dates: start: 20211231, end: 20220120
  6. ISATUXIMAB [Suspect]
     Active Substance: ISATUXIMAB
     Dosage: 740 MILLIGRAM, QW
     Route: 065
     Dates: start: 20211231, end: 20220120
  7. ISATUXIMAB [Suspect]
     Active Substance: ISATUXIMAB
     Dosage: 740 MILLIGRAM, QW
     Route: 065
     Dates: start: 20211231, end: 20220120
  8. ISATUXIMAB [Suspect]
     Active Substance: ISATUXIMAB
     Dosage: 740 MILLIGRAM, QW
     Dates: start: 20211231, end: 20220120
  9. POMALIDOMIDE [Suspect]
     Active Substance: POMALIDOMIDE
     Indication: Plasma cell myeloma refractory
     Dosage: 4 MILLIGRAM, QD 4 MG (21 DAYS OUT OF 28)
     Dates: start: 20211231, end: 20220120
  10. POMALIDOMIDE [Suspect]
     Active Substance: POMALIDOMIDE
     Dosage: 4 MILLIGRAM, QD 4 MG (21 DAYS OUT OF 28)
     Route: 065
     Dates: start: 20211231, end: 20220120
  11. POMALIDOMIDE [Suspect]
     Active Substance: POMALIDOMIDE
     Dosage: 4 MILLIGRAM, QD 4 MG (21 DAYS OUT OF 28)
     Route: 065
     Dates: start: 20211231, end: 20220120
  12. POMALIDOMIDE [Suspect]
     Active Substance: POMALIDOMIDE
     Dosage: 4 MILLIGRAM, QD 4 MG (21 DAYS OUT OF 28)
     Dates: start: 20211231, end: 20220120

REACTIONS (1)
  - Neutropenia [Recovered/Resolved]

NARRATIVE: CASE EVENT DATE: 20220117
